FAERS Safety Report 7282726-8 (Version None)
Quarter: 2010Q4

REPORT INFORMATION
  Report Type: 
  Country: None (occurrence: None)
  Receive Date: 20101221
  Receipt Date: 20091123
  Transmission Date: 20110411
  Serious: Yes (Other)
  Sender: FDA-Public Use
  Company Number: WAES 0910USA00235

PATIENT
  Age: 61 Year
  Sex: Male
  Weight: 140.6151 kg

DRUGS (6)
  1. JANUVIA [Suspect]
     Indication: TYPE 2 DIABETES MELLITUS
     Dosage: 100 MG/DAILY/PO
     Route: 048
     Dates: start: 20090625, end: 20090711
  2. LIPITOR [Concomitant]
  3. NAPROSYN [Concomitant]
  4. ATENOLOL [Concomitant]
  5. GLIMEPIRIDE [Concomitant]
  6. METFORMIN [Concomitant]

REACTIONS (2)
  - BLOOD GLUCOSE INCREASED [None]
  - PANCREATITIS ACUTE [None]
